FAERS Safety Report 7651681-0 (Version None)
Quarter: 2011Q3

REPORT INFORMATION
  Report Type: 
  Country: None (occurrence: None)
  Receive Date: 20110802
  Receipt Date: 20101123
  Transmission Date: 20111222
  Serious: Yes (Death, Hospitalization, Other)
  Sender: FDA-Public Use
  Company Number: PHHY2010TW80202

PATIENT
  Sex: Female
  Weight: 72 kg

DRUGS (1)
  1. EXJADE [Suspect]
     Dosage: UNK

REACTIONS (12)
  - SEPTIC SHOCK [None]
  - HYPOTENSION [None]
  - CHOLECYSTITIS ACUTE [None]
  - PANCREATITIS [None]
  - BRADYCARDIA [None]
  - INTRA-ABDOMINAL HAEMORRHAGE [None]
  - DEATH [None]
  - PYREXIA [None]
  - DYSPNOEA [None]
  - VOMITING [None]
  - RESPIRATORY FAILURE [None]
  - ABDOMINAL PAIN UPPER [None]
